FAERS Safety Report 17558101 (Version 1)
Quarter: 2020Q1

REPORT INFORMATION
  Report Type: Report from Study
  Country: US (occurrence: US)
  Receive Date: 20200318
  Receipt Date: 20200318
  Transmission Date: 20200409
  Serious: No
  Sender: FDA-Public Use
  Company Number: NVSC2020US071696

PATIENT
  Age: 71 Year
  Sex: Female

DRUGS (1)
  1. GLATOPA [Suspect]
     Active Substance: GLATIRAMER ACETATE
     Indication: MULTIPLE SCLEROSIS
     Dosage: 40 MG, OTHER
     Route: 050

REACTIONS (3)
  - Injection site reaction [Unknown]
  - Gait inability [Unknown]
  - Limb discomfort [Unknown]

NARRATIVE: CASE EVENT DATE: 20200309
